FAERS Safety Report 8722642 (Version 4)
Quarter: 2013Q1

REPORT INFORMATION
  Report Type: Report from Study
  Country: US (occurrence: US)
  Receive Date: 20120814
  Receipt Date: 20130115
  Transmission Date: 20140127
  Serious: Yes (Hospitalization)
  Sender: FDA-Public Use
  Company Number: US-ROCHE-1058753

PATIENT
  Age: 51 Year
  Sex: Female
  Weight: 117.13 kg

DRUGS (5)
  1. PEG-INTERFERON ALFA 2A [Suspect]
     Indication: CHRONIC HEPATITIS C
     Route: 058
     Dates: start: 20120309, end: 20130102
  2. RIBAVIRIN [Suspect]
     Indication: CHRONIC HEPATITIS C
     Dosage: DAILY DIVIDED DOSE
     Route: 048
     Dates: start: 20120309
  3. TELAPREVIR [Suspect]
     Indication: CHRONIC HEPATITIS C
     Route: 065
     Dates: start: 20120309, end: 20120525
  4. ADVAIR [Concomitant]
     Route: 065
  5. VENTOLIN [Concomitant]

REACTIONS (13)
  - Asthma [Recovered/Resolved]
  - Feeling abnormal [Unknown]
  - Dyspnoea [Unknown]
  - Fatigue [Unknown]
  - Dyspnoea exertional [Unknown]
  - Nausea [Unknown]
  - Decreased appetite [Unknown]
  - Weight increased [Unknown]
  - Unevaluable event [Unknown]
  - Alopecia [Unknown]
  - Hypogeusia [Unknown]
  - Pyrexia [Recovered/Resolved]
  - Injection site erythema [Unknown]
